FAERS Safety Report 16065183 (Version 1)
Quarter: 2019Q1

REPORT INFORMATION
  Report Type: Spontaneous
  Country: US (occurrence: US)
  Receive Date: 20190313
  Receipt Date: 20190313
  Transmission Date: 20190418
  Serious: No
  Sender: FDA-Public Use
  Company Number: US-BRISTOL-MYERS SQUIBB COMPANY-BMS-2019-024798

PATIENT
  Sex: Male

DRUGS (1)
  1. OPDIVO [Suspect]
     Active Substance: NIVOLUMAB
     Indication: MALIGNANT MELANOMA
     Dosage: UNAVAILABLE
     Route: 042

REACTIONS (8)
  - Visual impairment [Unknown]
  - Pancreatic disorder [Unknown]
  - Tongue disorder [Unknown]
  - Drug ineffective [Unknown]
  - Thyroid disorder [Unknown]
  - Alopecia [Unknown]
  - Lip disorder [Unknown]
  - Stomatitis [Unknown]
